FAERS Safety Report 7193458-9 (Version None)
Quarter: 2010Q4

REPORT INFORMATION
  Report Type: 
  Country: None (occurrence: None)
  Receive Date: 20101223
  Receipt Date: 20100727
  Transmission Date: 20110411
  Serious: Yes (Life-Threatening, Hospitalization, Other)
  Sender: FDA-Public Use
  Company Number: US-BAYER-200935380NA

PATIENT
  Sex: Female
  Weight: 63.636 kg

DRUGS (10)
  1. YAZ [Suspect]
     Indication: PREMENSTRUAL SYNDROME
     Route: 048
     Dates: start: 20070529, end: 20070828
  2. YAZ [Suspect]
     Indication: CONTRACEPTION
  3. YAZ [Suspect]
     Indication: ACNE
  4. SYNTHROID [Concomitant]
     Indication: HYPOTHYROIDISM
     Route: 048
     Dates: start: 20070627
  5. ADVIL [Concomitant]
     Route: 048
  6. ANALGESICS [Concomitant]
     Indication: PAIN MANAGEMENT
     Route: 065
  7. LEVOTHYROXINE [Concomitant]
     Route: 048
  8. ANTI-ACNE PREPARATIONS [Concomitant]
     Route: 061
  9. SERTRALINE HYDROCHLORIDE [Concomitant]
     Route: 048
  10. HYDROQUINONE [Concomitant]
     Dosage: 4%
     Route: 061

REACTIONS (10)
  - DEEP VEIN THROMBOSIS [None]
  - DILATATION VENTRICULAR [None]
  - DYSPNOEA [None]
  - OEDEMA PERIPHERAL [None]
  - PAIN IN EXTREMITY [None]
  - PULMONARY EMBOLISM [None]
  - PULMONARY HYPERTENSION [None]
  - RIGHT VENTRICULAR FAILURE [None]
  - SYNCOPE [None]
  - TACHYPNOEA [None]
